FAERS Safety Report 13882570 (Version 2)
Quarter: 2017Q3

REPORT INFORMATION
  Report Type: Spontaneous
  Country: US (occurrence: US)
  Receive Date: 20170818
  Receipt Date: 20170830
  Transmission Date: 20171127
  Serious: Yes (Other)
  Sender: FDA-Public Use
  Company Number: US-JNJFOC-20170811357

PATIENT
  Sex: Female
  Weight: 41.73 kg

DRUGS (10)
  1. HYDROCODONE [Concomitant]
     Active Substance: HYDROCODONE
     Indication: PAIN
     Route: 048
     Dates: start: 2002
  2. VALIUM [Concomitant]
     Active Substance: DIAZEPAM
     Indication: PAIN
     Route: 048
     Dates: start: 2002
  3. BUDESONIDE. [Concomitant]
     Active Substance: BUDESONIDE
     Indication: CROHN^S DISEASE
     Route: 048
     Dates: start: 201701
  4. DURAGESIC [Suspect]
     Active Substance: FENTANYL
     Indication: PAIN IN EXTREMITY
     Route: 062
  5. GABAPENTIN. [Concomitant]
     Active Substance: GABAPENTIN
     Indication: PAIN
     Route: 048
     Dates: start: 2002
  6. DURAGESIC [Suspect]
     Active Substance: FENTANYL
     Indication: PAIN IN EXTREMITY
     Route: 062
  7. DURAGESIC [Suspect]
     Active Substance: FENTANYL
     Indication: PAIN IN EXTREMITY
     Route: 062
     Dates: start: 2002
  8. DURAGESIC [Suspect]
     Active Substance: FENTANYL
     Indication: PAIN IN EXTREMITY
     Route: 062
  9. DURAGESIC [Suspect]
     Active Substance: FENTANYL
     Indication: PAIN IN EXTREMITY
     Route: 062
  10. FENTANYL. [Suspect]
     Active Substance: FENTANYL
     Indication: PAIN IN EXTREMITY
     Route: 062

REACTIONS (11)
  - Application site erythema [Unknown]
  - Loss of consciousness [Unknown]
  - Product adhesion issue [Unknown]
  - Vomiting [Unknown]
  - Drug dose omission [Unknown]
  - Drug interaction [Unknown]
  - Drug effect increased [Unknown]
  - Product quality issue [Unknown]
  - Crohn^s disease [Unknown]
  - Somnolence [Unknown]
  - Bone density decreased [Unknown]

NARRATIVE: CASE EVENT DATE: 2017
